FAERS Safety Report 11168466 (Version 2)
Quarter: 2015Q2

REPORT INFORMATION
  Report Type: Spontaneous
  Country: JP (occurrence: JP)
  Receive Date: 20150605
  Receipt Date: 20150626
  Transmission Date: 20150821
  Serious: Yes (Other)
  Sender: FDA-Public Use
  Company Number: JP-GLAXOSMITHKLINE-JP2015JPN068596

PATIENT
  Sex: Female

DRUGS (2)
  1. PREDONINE [Suspect]
     Active Substance: PREDNISOLONE\PREDNISOLONE ACETATE\PREDNISOLONE SODIUM SUCCINATE
     Route: 065
  2. REVOLADE [Suspect]
     Active Substance: ELTROMBOPAG
     Indication: IMMUNE THROMBOCYTOPENIC PURPURA
     Dosage: 25 MG, UNK
     Route: 048

REACTIONS (4)
  - Cerebral infarction [Recovered/Resolved]
  - Extremity necrosis [Not Recovered/Not Resolved]
  - Peripheral arterial occlusive disease [Not Recovered/Not Resolved]
  - Pain [Unknown]
